FAERS Safety Report 5683338-X (Version None)
Quarter: 2008Q1

REPORT INFORMATION
  Report Type: 
  Country: None (occurrence: None)
  Receive Date: 20080327
  Receipt Date: 20080316
  Transmission Date: 20080703
  Serious: Yes (Other)
  Sender: FDA-Public Use
  Company Number: IT-PFIZER INC-2008025127

PATIENT
  Sex: Male

DRUGS (2)
  1. ZOLOFT [Suspect]
  2. CHEMOTHERAPY NOS [Suspect]

REACTIONS (2)
  - NEOPLASM MALIGNANT [None]
  - THROMBOCYTOPENIA [None]
